FAERS Safety Report 8569369 (Version 3)
Quarter: 2012Q4

REPORT INFORMATION
  Report Type: 
  Country: GB (occurrence: GB)
  Receive Date: 20120518
  Receipt Date: 20121002
  Transmission Date: 20130627
  Serious: Yes (Hospitalization)
  Sender: FDA-Public Use
  Company Number: GB-WATSON-2012-08250

PATIENT
  Age: 34 Year
  Sex: Male
  Weight: 80 kg

DRUGS (4)
  1. LAMOTRIGINE (UNKNOWN) [Suspect]
     Indication: GRAND MAL CONVULSION
     Dosage: UNK
     Route: 048
     Dates: start: 20120213, end: 20120409
  2. LEVETIRACETAM [Concomitant]
     Indication: PRODUCT USED FOR UNKNOWN INDICATION
     Dosage: unk
     Route: 065
  3. SALBUTAMOL [Concomitant]
     Indication: PRODUCT USED FOR UNKNOWN INDICATION
     Dosage: unk
     Route: 065
  4. PARACETAMOL [Concomitant]
     Indication: PRODUCT USED FOR UNKNOWN INDICATION
     Dosage: unk
     Route: 065

REACTIONS (33)
  - Rash erythematous [Recovered/Resolved]
  - Body temperature increased [Recovered/Resolved]
  - Influenza like illness [Recovered/Resolved]
  - Headache [Recovered/Resolved]
  - Angioedema [Recovered/Resolved]
  - Mouth ulceration [Recovered/Resolved]
  - Swelling face [Recovered/Resolved]
  - Conjunctival irritation [Recovered/Resolved]
  - Oropharyngeal pain [Recovered/Resolved]
  - Fatigue [Recovered/Resolved]
  - Lymphadenopathy [Recovered/Resolved]
  - Arthralgia [Recovered/Resolved]
  - Feeling of body temperature change [Recovered/Resolved]
  - Pruritus [Recovering/Resolving]
  - Rash pruritic [Recovered/Resolved]
  - Pain [Recovered/Resolved]
  - Drug-induced liver injury [Recovered/Resolved]
  - Nausea [Recovered/Resolved]
  - Vomiting [Recovered/Resolved]
  - Abdominal pain [Recovered/Resolved]
  - Diarrhoea [Recovered/Resolved]
  - Liver function test abnormal [Recovering/Resolving]
  - Eosinophilia [Recovering/Resolving]
  - Odynophagia [Recovered/Resolved]
  - Eyelid oedema [Recovered/Resolved]
  - Drug reaction with eosinophilia and systemic symptoms [Recovered/Resolved]
  - Rash maculo-papular [Recovered/Resolved]
  - Eosinophil count increased [Recovered/Resolved]
  - Alanine aminotransferase increased [Recovered/Resolved]
  - Blood alkaline phosphatase increased [Recovered/Resolved]
  - Diarrhoea haemorrhagic [Recovered/Resolved]
  - Pyrexia [Recovered/Resolved]
  - Colitis [Recovered/Resolved]
